FAERS Safety Report 4727017-1 (Version None)
Quarter: 2005Q3

REPORT INFORMATION
  Report Type: 
  Country: None (occurrence: None)
  Receive Date: 20050726
  Receipt Date: 20050713
  Transmission Date: 20060218
  Serious: Yes (Hospitalization)
  Sender: FDA-Public Use
  Company Number: 2005101442

PATIENT
  Age: 36 Year
  Sex: Male

DRUGS (6)
  1. SOLU-MEDROL [Suspect]
     Indication: ASTHMA
     Dosage: 80 MG (80 MG, 1 IN 1 D), INTRAVENOUS
     Route: 042
     Dates: start: 20050515
  2. DUONEB (IPRATROPIUM BROMIDE, SALBUTAMOL SULFATE) [Concomitant]
  3. ANTIBIOTICS (ANTIBIOTICS) [Concomitant]
  4. ALBUTEROL [Concomitant]
  5. THEO-DUR [Concomitant]
  6. BENADRYL [Concomitant]

REACTIONS (1)
  - ASTHMA [None]
